FAERS Safety Report 7296904-5 (Version None)
Quarter: 2011Q1

REPORT INFORMATION
  Report Type: 
  Country: None (occurrence: None)
  Receive Date: 20110216
  Receipt Date: 20110209
  Transmission Date: 20110831
  Serious: Yes (Hospitalization, Other)
  Sender: FDA-Public Use
  Company Number: FR-JNJFOC-20110203776

PATIENT
  Sex: Female

DRUGS (3)
  1. DEPAKENE [Concomitant]
     Route: 065
  2. TOPIRAMATE [Suspect]
     Indication: EPILEPSY
     Route: 048
  3. RISPERDAL [Interacting]
     Indication: PRODUCT USED FOR UNKNOWN INDICATION
     Route: 065

REACTIONS (3)
  - MENTAL STATUS CHANGES [None]
  - DRUG INTERACTION [None]
  - DEPRESSION [None]
